FAERS Safety Report 9742141 (Version 4)
Quarter: 2016Q4

REPORT INFORMATION
  Report Type: Spontaneous
  Country: US (occurrence: US)
  Receive Date: 20131210
  Receipt Date: 20161129
  Transmission Date: 20170207
  Serious: Yes (Other)
  Sender: FDA-Public Use
  Company Number: US-NAPPMUNDI-USA-2013-0109277

PATIENT
  Age: 30 Year
  Sex: Female

DRUGS (11)
  1. LYRICA [Concomitant]
     Active Substance: PREGABALIN
     Indication: PAIN
  2. CYMBALTA [Concomitant]
     Active Substance: DULOXETINE HYDROCHLORIDE
     Indication: ANXIETY
     Dosage: UNK
     Dates: start: 20070501
  3. SOMA [Concomitant]
     Active Substance: CARISOPRODOL
  4. NEURONTIN [Concomitant]
     Active Substance: GABAPENTIN
     Indication: PAIN
     Dosage: 300-600MGUNK
     Dates: start: 20070220
  5. XANAX [Concomitant]
     Active Substance: ALPRAZOLAM
     Dosage: 0.5 MG, TID
     Dates: end: 20070501
  6. NEURONTIN [Concomitant]
     Active Substance: GABAPENTIN
     Dosage: 200 MG, Q8H
  7. PROVIGIL [Concomitant]
     Active Substance: MODAFINIL
     Indication: PAIN
     Dosage: 200 MG, UNK
     Dates: start: 20070220
  8. METHADONE [Concomitant]
     Active Substance: METHADONE HYDROCHLORIDE
     Indication: PAIN
     Dosage: UNK
     Dates: start: 20070501
  9. MS CONTIN [Suspect]
     Active Substance: MORPHINE SULFATE
     Indication: THORACIC OUTLET SYNDROME
     Dosage: 1 TABLET, SEE TEXT
     Route: 048
     Dates: start: 2007
  10. EFFEXOR [Concomitant]
     Active Substance: VENLAFAXINE HYDROCHLORIDE
     Indication: DEPRESSION
     Dosage: UNK
  11. MS CONTIN [Suspect]
     Active Substance: MORPHINE SULFATE
     Indication: PAIN
     Dosage: 130 MG, BID
     Route: 048
     Dates: start: 20070309, end: 20070501

REACTIONS (10)
  - Breakthrough pain [Unknown]
  - Amenorrhoea [Not Recovered/Not Resolved]
  - Tooth loss [Not Recovered/Not Resolved]
  - Back pain [Unknown]
  - Pain in extremity [Unknown]
  - Anxiety [Unknown]
  - Pain [Unknown]
  - Ovarian cyst [Unknown]
  - Neck pain [Unknown]
  - Dry mouth [Unknown]

NARRATIVE: CASE EVENT DATE: 20070220
